FAERS Safety Report 18479624 (Version 1)
Quarter: 2020Q4

REPORT INFORMATION
  Report Type: Spontaneous
  Country: US (occurrence: US)
  Receive Date: 20201107
  Receipt Date: 20201107
  Transmission Date: 20210114
  Serious: Yes (Other)
  Sender: FDA-Public Use
  Company Number: None

PATIENT
  Age: 43 Year
  Sex: Male
  Weight: 112.5 kg

DRUGS (3)
  1. ALPRAZOLAM 1MG TAB ACT [Suspect]
     Active Substance: ALPRAZOLAM
     Indication: GENERALISED ANXIETY DISORDER
     Dosage: ?          QUANTITY:.5 TABLET(S);?
     Route: 048
     Dates: start: 20201102, end: 20201106
  2. DEXTROAMPHETAMINE SULFATE. [Concomitant]
     Active Substance: DEXTROAMPHETAMINE SULFATE
  3. ADVIL [Concomitant]
     Active Substance: IBUPROFEN

REACTIONS (7)
  - Product substitution issue [None]
  - Panic attack [None]
  - Drug ineffective [None]
  - Withdrawal syndrome [None]
  - Anxiety [None]
  - Headache [None]
  - Product formulation issue [None]

NARRATIVE: CASE EVENT DATE: 20201106
